FAERS Safety Report 4375275-8 (Version None)
Quarter: 2004Q2

REPORT INFORMATION
  Report Type: 
  Country: None (occurrence: None)
  Receive Date: 20040609
  Receipt Date: 20040602
  Transmission Date: 20050107
  Serious: Yes (Hospitalization)
  Sender: FDA-Public Use
  Company Number: 2004036888

PATIENT
  Age: 9 Month
  Sex: Male
  Weight: 11.7935 kg

DRUGS (1)
  1. INFANTS' PEDIACARE LONG-ACTING COUGH (DEXTROMETHORPHAN) [Suspect]
     Indication: NASAL CONGESTION
     Dosage: 1/4 DROPPERFUL ONE TIME PER
     Dates: end: 20040531

REACTIONS (5)
  - CONVULSION [None]
  - CYANOSIS [None]
  - FEELING ABNORMAL [None]
  - LETHARGY [None]
  - PALLOR [None]
